FAERS Safety Report 7476217-9 (Version None)
Quarter: 2011Q2

REPORT INFORMATION
  Report Type: 
  Country: None (occurrence: None)
  Receive Date: 20110512
  Receipt Date: 20110505
  Transmission Date: 20111010
  Serious: Yes (Hospitalization)
  Sender: FDA-Public Use
  Company Number: US-B.I. PHARMACEUTICALS,INC./RIDGEFIELD-2011-BP-09083BP

PATIENT
  Age: 59 Year
  Sex: Female

DRUGS (12)
  1. TRAZODONE HCL [Concomitant]
     Dosage: 150 MG
  2. SINGULAIR [Concomitant]
     Dosage: 10 MG
  3. TOPAMAX [Concomitant]
     Dosage: 125 MG
  4. AMBIEN [Concomitant]
     Dosage: 125 MG
  5. BONIVA [Concomitant]
     Route: 042
  6. SALSALATE [Concomitant]
     Dosage: PRN
  7. PRADAXA [Suspect]
     Indication: ANTICOAGULANT THERAPY
  8. ASPIRIN [Concomitant]
     Dosage: 81 MG
  9. PRADAXA [Suspect]
     Indication: ATRIAL FIBRILLATION
     Dosage: 300 MG
     Route: 048
     Dates: start: 20110304, end: 20110313
  10. LEVOTHYROXINE SODIUM [Concomitant]
     Dosage: 125 MCG
  11. ZOLOFT [Concomitant]
  12. VITAMIN B-12 [Concomitant]

REACTIONS (2)
  - POST PROCEDURAL HAEMORRHAGE [None]
  - ASPIRATION BIOPSY [None]
